FAERS Safety Report 6626297-5 (Version None)
Quarter: 2010Q1

REPORT INFORMATION
  Report Type: 
  Country: None (occurrence: None)
  Receive Date: 20100310
  Receipt Date: 20090311
  Transmission Date: 20100710
  Serious: No
  Sender: FDA-Public Use
  Company Number: US-ABBOTT-09P-163-0561982-00

PATIENT
  Sex: Female
  Weight: 48.124 kg

DRUGS (2)
  1. LUPRON DEPOT [Suspect]
     Indication: ENDOMETRIOSIS
     Route: 050
     Dates: start: 20090223
  2. LUPRON DEPOT [Suspect]
     Dates: start: 20060401, end: 20060801

REACTIONS (8)
  - ABDOMINAL DISCOMFORT [None]
  - AFFECT LABILITY [None]
  - ALOPECIA [None]
  - ANORECTAL DISCOMFORT [None]
  - DYSURIA [None]
  - EYE SWELLING [None]
  - FURUNCLE [None]
  - MENSTRUATION IRREGULAR [None]
